FAERS Safety Report 7089928-4 (Version None)
Quarter: 2010Q4

REPORT INFORMATION
  Report Type: 
  Country: None (occurrence: None)
  Receive Date: 20101108
  Receipt Date: 20101025
  Transmission Date: 20110411
  Serious: Yes (Hospitalization, Other)
  Sender: FDA-Public Use
  Company Number: US-AMGEN-QUU417767

PATIENT

DRUGS (3)
  1. ENBREL [Suspect]
     Indication: RHEUMATOID ARTHRITIS
     Dosage: 50 MG, QWK
     Route: 058
     Dates: start: 20000101, end: 20100701
  2. ENBREL [Suspect]
     Dates: start: 20000101, end: 20100701
  3. REMICADE [Concomitant]

REACTIONS (7)
  - CARDIAC ARREST [None]
  - CATARACT [None]
  - DIABETES MELLITUS [None]
  - DYSPNOEA [None]
  - MOBILITY DECREASED [None]
  - MYOCARDIAL INFARCTION [None]
  - RHEUMATOID ARTHRITIS [None]
